FAERS Safety Report 22651988 (Version 1)
Quarter: 2023Q2

REPORT INFORMATION
  Report Type: Spontaneous
  Country: US (occurrence: US)
  Receive Date: 20230628
  Receipt Date: 20230628
  Transmission Date: 20230721
  Serious: No
  Sender: FDA-Public Use
  Company Number: US-PFIZER INC-PV202300112088

PATIENT
  Sex: Female

DRUGS (2)
  1. PAXLOVID [Suspect]
     Active Substance: NIRMATRELVIR\RITONAVIR
     Indication: COVID-19 treatment
     Dosage: UNK
  2. EUCRISA [Suspect]
     Active Substance: CRISABOROLE
     Dosage: UNK

REACTIONS (6)
  - Dysgeusia [Unknown]
  - Dyspepsia [Unknown]
  - Nausea [Unknown]
  - Hyperhidrosis [Unknown]
  - Hot flush [Unknown]
  - Abdominal discomfort [Not Recovered/Not Resolved]
